FAERS Safety Report 8496558-6 (Version None)
Quarter: 2012Q3

REPORT INFORMATION
  Report Type: 
  Country: None (occurrence: None)
  Receive Date: 20120709
  Receipt Date: 20120703
  Transmission Date: 20120928
  Serious: Yes (Hospitalization)
  Sender: FDA-Public Use
  Company Number: TR-ABBOTT-12P-161-0953614-00

PATIENT
  Age: 30 Year
  Sex: Male
  Weight: 73 kg

DRUGS (3)
  1. METFORMIN HCL [Interacting]
     Indication: SUICIDE ATTEMPT
     Dosage: 5 TABLETS
     Dates: start: 20120629, end: 20120629
  2. CABRAL (PHENIRAMIDOLE) [Interacting]
     Indication: SUICIDE ATTEMPT
     Dosage: 8 CAPSULES
     Dates: start: 20120629, end: 20120629
  3. TARKA [Suspect]
     Indication: SUICIDE ATTEMPT
     Dosage: 240/4 MG/12 TABLETS
     Route: 048
     Dates: start: 20120629, end: 20120629

REACTIONS (4)
  - SUICIDE ATTEMPT [None]
  - HYPOTENSION [None]
  - DRUG INTERACTION [None]
  - BRADYCARDIA [None]
